FAERS Safety Report 9639332 (Version 5)
Quarter: 2014Q1

REPORT INFORMATION
  Report Type: Spontaneous
  Country: US (occurrence: US)
  Receive Date: 20131022
  Receipt Date: 20140130
  Transmission Date: 20141002
  Serious: Yes (Hospitalization, Disabling, Other)
  Sender: FDA-Public Use
  Company Number: US-009507513-1102USA01363

PATIENT
  Sex: Female
  Weight: 54.42 kg

DRUGS (3)
  1. FOSAMAX [Suspect]
     Indication: OSTEOPENIA
     Dosage: 70 MG, QW
     Route: 048
     Dates: start: 200307, end: 200810
  2. FOSAMAX [Suspect]
     Indication: OSTEOPENIA
     Dosage: 70 MG, UNK
     Route: 048
     Dates: start: 200810, end: 201002
  3. ALENDRONATE SODIUM [Suspect]
     Indication: OSTEOPENIA
     Dosage: 70 MG, UNK
     Route: 048
     Dates: start: 200811, end: 20100116

REACTIONS (48)
  - Intramedullary rod insertion [Not Recovered/Not Resolved]
  - Intramedullary rod insertion [Not Recovered/Not Resolved]
  - Fall [Unknown]
  - Activities of daily living impaired [Not Recovered/Not Resolved]
  - Femur fracture [Not Recovered/Not Resolved]
  - Femur fracture [Recovered/Resolved]
  - Inflammation [Unknown]
  - Gait disturbance [Unknown]
  - Patient isolation [Not Recovered/Not Resolved]
  - Incision site pain [Not Recovered/Not Resolved]
  - Tendonitis [Not Recovered/Not Resolved]
  - Depressed mood [Not Recovered/Not Resolved]
  - Ataxia [Not Recovered/Not Resolved]
  - Thrombosis [Recovered/Resolved]
  - Bone lesion excision [Unknown]
  - Foot fracture [Unknown]
  - Hypertension [Unknown]
  - Urinary tract infection [Unknown]
  - Abnormal loss of weight [Unknown]
  - Rosacea [Unknown]
  - Tendon sheath incision [Unknown]
  - Hypercholesterolaemia [Unknown]
  - Irritable bowel syndrome [Unknown]
  - Uterine leiomyoma [Unknown]
  - Osteoarthritis [Unknown]
  - Cervical dysplasia [Unknown]
  - Haematuria [Unknown]
  - Raynaud^s phenomenon [Unknown]
  - Rotator cuff syndrome [Unknown]
  - Bursitis [Unknown]
  - Plantar fasciitis [Unknown]
  - Colon adenoma [Unknown]
  - Osteoporosis [Unknown]
  - Vulvitis [Unknown]
  - Anxiety [Unknown]
  - Spinal osteoarthritis [Unknown]
  - Cervicitis human papilloma virus [Unknown]
  - Tendonitis [Unknown]
  - Arthritis [Unknown]
  - Mobility decreased [Not Recovered/Not Resolved]
  - Breast cyst [Unknown]
  - Asthenia [Not Recovered/Not Resolved]
  - Fibromyalgia [Unknown]
  - Pain in extremity [Unknown]
  - Oesophagitis [Unknown]
  - Dysphagia [Unknown]
  - Gastrooesophageal reflux disease [Unknown]
  - Erythema [Recovering/Resolving]
